FAERS Safety Report 14594628 (Version 13)
Quarter: 2019Q4

REPORT INFORMATION
  Report Type: Report from Study
  Country: DE (occurrence: DE)
  Receive Date: 20180302
  Receipt Date: 20191117
  Transmission Date: 20200122
  Serious: Yes (Life-Threatening, Hospitalization, Other)
  Sender: FDA-Public Use
  Company Number: DE-BRISTOL-MYERS SQUIBB COMPANY-BMS-2018-018422

PATIENT
  Age: 68 Year
  Sex: Male

DRUGS (5)
  1. NIVOLUMAB [Suspect]
     Active Substance: NIVOLUMAB
     Indication: METASTATIC MALIGNANT MELANOMA
     Dosage: 86.2 MG, Q3WK
     Route: 042
     Dates: start: 20180201, end: 20180409
  2. IPILIMUMAB [Suspect]
     Active Substance: IPILIMUMAB
     Indication: PRODUCT USED FOR UNKNOWN INDICATION
     Dosage: 1 DOSAGE FORM, Q3WK
     Route: 065
     Dates: start: 20180201, end: 20180223
  3. NIVOLUMAB [Suspect]
     Active Substance: NIVOLUMAB
     Indication: PRODUCT USED FOR UNKNOWN INDICATION
     Dosage: 480 MG, Q4WK
     Route: 042
     Dates: start: 20180605
  4. NIVOLUMAB [Suspect]
     Active Substance: NIVOLUMAB
     Indication: PRODUCT USED FOR UNKNOWN INDICATION
     Dosage: 84.4 MILLIGRAM
     Route: 042
     Dates: start: 20190201, end: 20190223
  5. IPILIMUMAB [Suspect]
     Active Substance: IPILIMUMAB
     Indication: METASTATIC MALIGNANT MELANOMA
     Dosage: 258.6 MG, Q3WK
     Route: 042
     Dates: start: 20180201, end: 20180409

REACTIONS (13)
  - Infection [Unknown]
  - Metastases to liver [Recovering/Resolving]
  - Pneumonitis [Recovering/Resolving]
  - Malignant neoplasm progression [Unknown]
  - Neoplasm malignant [Recovered/Resolved]
  - Mitral valve disease [Not Recovered/Not Resolved]
  - Solar dermatitis [Unknown]
  - Atrial fibrillation [Recovered/Resolved]
  - Tricuspid valve disease [Not Recovered/Not Resolved]
  - Arthralgia [Unknown]
  - Basal cell carcinoma [Recovered/Resolved]
  - Liver function test increased [Unknown]
  - Pulmonary hypertension [Not Recovered/Not Resolved]

NARRATIVE: CASE EVENT DATE: 20180216
